FAERS Safety Report 9852207 (Version 2)
Quarter: 2014Q2

REPORT INFORMATION
  Report Type: Spontaneous
  Country: US (occurrence: US)
  Receive Date: 20140129
  Receipt Date: 20140627
  Transmission Date: 20141212
  Serious: Yes (Hospitalization)
  Sender: FDA-Public Use
  Company Number: US-BRACCO-010235

PATIENT
  Age: 12 Year
  Sex: Female
  Weight: 37 kg

DRUGS (11)
  1. MULTIHANCE [Suspect]
     Indication: NUCLEAR MAGNETIC RESONANCE IMAGING
     Route: 042
     Dates: start: 20131125, end: 20131125
  2. MIRALAX [Concomitant]
  3. LAMICTAL [Concomitant]
  4. EPIPEN [Concomitant]
     Dosage: CARRIED WITH PATIENT 24/7
  5. KEPPRA [Concomitant]
  6. GLYCOLAX [Concomitant]
  7. VALTREX [Concomitant]
  8. DIAZEPAM [Concomitant]
  9. MULTIHANCE [Suspect]
     Indication: ANGIOGRAM
     Route: 042
     Dates: start: 20131125, end: 20131125
  10. PROPOFOL [Concomitant]
     Dates: start: 20131125, end: 20131125
  11. OXYGEN [Concomitant]
     Route: 045
     Dates: start: 20131125, end: 20131125

REACTIONS (1)
  - Anaphylactic reaction [Recovered/Resolved]
